FAERS Safety Report 4751075-1 (Version None)
Quarter: 2005Q3

REPORT INFORMATION
  Report Type: 
  Country: None (occurrence: None)
  Receive Date: 20050822
  Receipt Date: 20050807
  Transmission Date: 20060218
  Serious: Yes (Death)
  Sender: FDA-Public Use
  Company Number: 05USA0174

PATIENT
  Age: 40 Year
  Sex: Male

DRUGS (4)
  1. AGGRASTAT [Suspect]
     Indication: ACUTE MYOCARDIAL INFARCTION
     Dates: start: 20050413, end: 20050413
  2. ASPIRIN [Concomitant]
  3. CLOPIDOGREL BISULFATE (CLOPIDOGREL BISULFATE) [Concomitant]
  4. HEPARIN [Concomitant]

REACTIONS (4)
  - ARRHYTHMIA [None]
  - CORONARY ARTERY DISEASE [None]
  - POST PROCEDURAL COMPLICATION [None]
  - PROCEDURAL HYPOTENSION [None]
